FAERS Safety Report 20554709 (Version 1)
Quarter: 2022Q1

REPORT INFORMATION
  Report Type: Spontaneous
  Country: US (occurrence: None)
  Receive Date: 20220304
  Receipt Date: 20220304
  Transmission Date: 20220424
  Serious: Yes (Death)
  Sender: FDA-Public Use
  Company Number: None

PATIENT
  Age: 62 Year
  Sex: Male

DRUGS (1)
  1. TECARTUS [Suspect]
     Active Substance: BREXUCABTAGENE AUTOLEUCEL

REACTIONS (14)
  - Hypotension [None]
  - Hypoxia [None]
  - Cytokine release syndrome [None]
  - Bacteraemia [None]
  - Sepsis [None]
  - Pancytopenia [None]
  - Melaena [None]
  - Haematuria [None]
  - Thrombocytopenia [None]
  - Mutism [None]
  - Cerebrovascular accident [None]
  - Cerebellar haemorrhage [None]
  - Brain oedema [None]
  - Cerebral mass effect [None]
